FAERS Safety Report 24685835 (Version 1)
Quarter: 2024Q4

REPORT INFORMATION
  Report Type: Spontaneous
  Country: GB (occurrence: GB)
  Receive Date: 20241202
  Receipt Date: 20241202
  Transmission Date: 20250114
  Serious: Yes (Other)
  Sender: ROCHE
  Company Number: GB-ROCHE-10000141044

PATIENT
  Age: 50 Year
  Sex: Female

DRUGS (7)
  1. RITUXIMAB [Suspect]
     Active Substance: RITUXIMAB
     Indication: COVID-19
     Dosage: LAST DOSE GIVEN 4 MONTHS PRIOR
     Route: 042
  2. RAMIPRIL [Suspect]
     Active Substance: RAMIPRIL
     Indication: COVID-19
     Route: 065
  3. PREDNISOLONE [Suspect]
     Active Substance: PREDNISOLONE
     Indication: COVID-19
     Route: 065
  4. RITUXIMAB [Suspect]
     Active Substance: RITUXIMAB
     Indication: COVID-19
     Dosage: LAST DOSE GIVEN 4 MONTHS PRIOR
     Route: 042
  5. AMOXICILLIN [Concomitant]
     Active Substance: AMOXICILLIN
     Route: 042
  6. GENTAMICIN [Concomitant]
     Active Substance: GENTAMICIN
     Route: 042
  7. LINEZOLID [Concomitant]
     Active Substance: LINEZOLID
     Route: 048

REACTIONS (2)
  - Listeriosis [Unknown]
  - Myopericarditis [Unknown]
